FAERS Safety Report 11334724 (Version 1)
Quarter: 2015Q3

REPORT INFORMATION
  Report Type: Spontaneous
  Country: US (occurrence: US)
  Receive Date: 20150804
  Receipt Date: 20150804
  Transmission Date: 20151125
  Serious: Yes (Hospitalization)
  Sender: FDA-Public Use
  Company Number: US-AMGEN-USASP2015078072

PATIENT
  Age: 57 Year
  Sex: Female

DRUGS (1)
  1. ENBREL [Suspect]
     Active Substance: ETANERCEPT
     Indication: PRODUCT USED FOR UNKNOWN INDICATION
     Dosage: 50 MG, 2 TIMES/WK
     Route: 065
     Dates: end: 2015

REACTIONS (5)
  - Hypersensitivity [Unknown]
  - Rash [Unknown]
  - Palpitations [Unknown]
  - Pruritus [Unknown]
  - Hypertension [Unknown]

NARRATIVE: CASE EVENT DATE: 201506
